FAERS Safety Report 18344720 (Version 3)
Quarter: 2020Q4

REPORT INFORMATION
  Report Type: Spontaneous
  Country: FR (occurrence: FR)
  Receive Date: 20201005
  Receipt Date: 20201102
  Transmission Date: 20210114
  Serious: Yes (Hospitalization)
  Sender: FDA-Public Use
  Company Number: FR-MYLANLABS-2020M1083261

PATIENT
  Age: 64 Year
  Sex: Male
  Weight: 71 kg

DRUGS (14)
  1. DEXAMETHASONE. [Suspect]
     Active Substance: DEXAMETHASONE
     Indication: CORONAVIRUS INFECTION
     Dosage: 4 MILLIGRAM, QD
     Route: 042
     Dates: start: 20200721
  2. LOVENOX [Suspect]
     Active Substance: ENOXAPARIN SODIUM
     Indication: THROMBOSIS PROPHYLAXIS
     Dosage: 0.4 MILLILITER, QD
     Route: 042
     Dates: start: 20200720
  3. XATRAL                             /00975302/ [Suspect]
     Active Substance: ALFUZOSIN HYDROCHLORIDE
     Indication: ANXIETY
     Dosage: 2.5 MILLIGRAM, QD
     Route: 048
     Dates: start: 20200720
  4. CYMEVAN [Suspect]
     Active Substance: GANCICLOVIR
     Indication: CYTOMEGALOVIRUS INFECTION
     Dosage: 500 MILLIGRAM, QD
     Route: 042
     Dates: start: 20200711, end: 20200723
  5. BACTRIM [Suspect]
     Active Substance: SULFAMETHOXAZOLE\TRIMETHOPRIM
     Indication: NEUTROPENIA
     Dosage: 3 DOSAGE FORM, QW
     Route: 042
     Dates: start: 20200708, end: 20200722
  6. LEDERFOLINE [Suspect]
     Active Substance: LEUCOVORIN CALCIUM
     Indication: PRODUCT USED FOR UNKNOWN INDICATION
     Dosage: 25 MILLIGRAM ON TUESDAY
     Route: 065
     Dates: start: 202007
  7. PANTOPRAZOLE [Suspect]
     Active Substance: PANTOPRAZOLE
     Indication: ULCER
     Dosage: 20 MILLIGRAM, QD, 20 MG IN THE EVENING
     Route: 048
     Dates: start: 20200720
  8. DEXAMETHASONE. [Suspect]
     Active Substance: DEXAMETHASONE
     Indication: COVID-19 PNEUMONIA
  9. LACTULOSE. [Suspect]
     Active Substance: LACTULOSE
     Indication: GASTROINTESTINAL MOTILITY DISORDER
     Dosage: 2 DOSAGE FORM, QD, 2 SACHETS IN THE MORNING
     Route: 065
     Dates: start: 20200720
  10. LOVENOX [Suspect]
     Active Substance: ENOXAPARIN SODIUM
     Dosage: 0.2 MILLILITER, QD MORNING AND EVENING
     Route: 042
     Dates: start: 20200720
  11. CYMEVAN [Suspect]
     Active Substance: GANCICLOVIR
     Dosage: 250 MILLIGRAM 0.5 DAY, MORNING AND EVENING
     Route: 042
     Dates: start: 20200711, end: 20200723
  12. CEFTRIAXONE. [Suspect]
     Active Substance: CEFTRIAXONE
     Indication: PRODUCT USED FOR UNKNOWN INDICATION
     Dosage: 1 GRAM, QD
     Route: 042
     Dates: start: 20200506, end: 20200720
  13. PARACETAMOL [Suspect]
     Active Substance: ACETAMINOPHEN
     Indication: PRODUCT USED FOR UNKNOWN INDICATION
     Dosage: 3 GRAM (MAXIMUM IF NECESSARY)
     Route: 065
     Dates: start: 20200720
  14. BACTRIM [Suspect]
     Active Substance: SULFAMETHOXAZOLE\TRIMETHOPRIM
     Indication: NEUTROPENIA
     Dosage: 1 DOSAGE FORM 0.33 WEEK, ON MONDAYS, WEDNESDAYS AND FRIDAYS
     Route: 048
     Dates: start: 20200708, end: 20200722

REACTIONS (5)
  - Neutropenia [Not Recovered/Not Resolved]
  - Lymphopenia [Not Recovered/Not Resolved]
  - Thrombocytopenia [Not Recovered/Not Resolved]
  - Off label use [Unknown]
  - Leukopenia [Not Recovered/Not Resolved]

NARRATIVE: CASE EVENT DATE: 20200716
